FAERS Safety Report 4461348-8 (Version None)
Quarter: 2004Q3

REPORT INFORMATION
  Report Type: 
  Country: None (occurrence: None)
  Receive Date: 20040928
  Receipt Date: 20040812
  Transmission Date: 20050211
  Serious: Yes (Hospitalization)
  Sender: FDA-Public Use
  Company Number: ES-BRISTOL-MYERS SQUIBB COMPANY-12668893

PATIENT
  Age: 59 Year
  Sex: Female

DRUGS (3)
  1. ARIPIPRAZOLE [Suspect]
     Indication: SCHIZOPHRENIA
     Dosage: 15MG 27-FEB-04 TO 21-APR-04, 20MG 22-APR-04 TO 01-AUG-04, 30MG 02-AUG-04 TO 11-AUG-04.
     Route: 048
     Dates: start: 20040227
  2. OLANZAPINE [Concomitant]
     Dates: start: 20020516, end: 20040302
  3. LORAZEPAM [Concomitant]
     Dosage: 10-MAR-2004 TO 20-APR-2004 AND 06-AUG-2004 TO 12-AUG-2004
     Dates: start: 20040310, end: 20040812

REACTIONS (4)
  - DELUSION [None]
  - DRUG INEFFECTIVE [None]
  - HALLUCINATION [None]
  - SCHIZOPHRENIA [None]
